FAERS Safety Report 8511640-2 (Version None)
Quarter: 2012Q3

REPORT INFORMATION
  Report Type: 
  Country: None (occurrence: None)
  Receive Date: 20120716
  Receipt Date: 20120703
  Transmission Date: 20120928
  Serious: Yes (Death)
  Sender: FDA-Public Use
  Company Number: US-SANOFI-AVENTIS-2012SA040219

PATIENT
  Age: 59 Year
  Sex: Female
  Weight: 50 kg

DRUGS (7)
  1. HYDROMORPHONE HCL [Concomitant]
  2. PLAVIX [Suspect]
     Indication: STENT PLACEMENT
     Dates: start: 20100310, end: 20120401
  3. PLAVIX [Suspect]
     Indication: CORONARY ARTERY DISEASE
     Dates: start: 20100310, end: 20120401
  4. LORAZEPAM [Concomitant]
  5. PEPCID [Concomitant]
     Indication: DYSPEPSIA
  6. FENTANYL [Concomitant]
     Indication: PAIN
  7. DEXAMETHASONE [Concomitant]
     Indication: CHEMOTHERAPY

REACTIONS (1)
  - PANCREATIC CARCINOMA STAGE II [None]
